FAERS Safety Report 25249931 (Version 1)
Quarter: 2025Q2

REPORT INFORMATION
  Report Type: Spontaneous
  Country: DE (occurrence: DE)
  Receive Date: 20250429
  Receipt Date: 20250429
  Transmission Date: 20250717
  Serious: Yes (Hospitalization, Other)
  Sender: AUROBINDO
  Company Number: DE-PFIZER INC-2020086409

PATIENT
  Age: 68 Year
  Sex: Female
  Weight: 58 kg

DRUGS (11)
  1. PREGABALIN [Suspect]
     Active Substance: PREGABALIN
     Indication: Herpes zoster
     Route: 065
     Dates: end: 201909
  2. CELEBREX [Suspect]
     Active Substance: CELECOXIB
     Indication: Musculoskeletal stiffness
     Dosage: 200 MILLIGRAM, ONCE A DAY (200 MG, 1X/DAY)
     Route: 065
     Dates: start: 2005
  3. ASCORBIC ACID\ZINC SULFATE [Concomitant]
     Active Substance: ASCORBIC ACID\ZINC SULFATE
     Indication: Product used for unknown indication
     Route: 065
  4. MAGNESIUM [Concomitant]
     Active Substance: MAGNESIUM
     Indication: Product used for unknown indication
     Dosage: 375 MILLILITER, ONCE A DAY (375 ML, 1X/DAY)
     Route: 065
  5. XIPAMIDE [Concomitant]
     Active Substance: XIPAMIDE
     Indication: Product used for unknown indication
     Dosage: 40 MILLIGRAM, ONCE A DAY (40 MG, 1X/DAY)
     Route: 065
  6. Tolperison Hcl Stada [Concomitant]
     Indication: Product used for unknown indication
     Dosage: 100 MILLIGRAM, ONCE A DAY (50 MG, 2X/DAY)
     Route: 065
  7. CALCIUM CARBONATE\CHOLECALCIFEROL [Concomitant]
     Active Substance: CALCIUM CARBONATE\CHOLECALCIFEROL
     Indication: Product used for unknown indication
     Dosage: 400 MILLIGRAM, ONCE A DAY
     Route: 065
  8. Bisoprolol ratiopharm [Concomitant]
     Indication: Product used for unknown indication
     Dosage: 2.5 MILLIGRAM, ONCE A DAY (2.5 MG, 1X/DAY)
     Route: 065
  9. SILICON DIOXIDE [Concomitant]
     Active Substance: SILICON DIOXIDE
     Indication: Product used for unknown indication
     Route: 065
  10. Tramadol librapharm [Concomitant]
     Indication: Product used for unknown indication
     Dosage: 400 MILLIGRAM, ONCE A DAY (200 MG, 2X/DAY)
     Route: 065
  11. LEVOTHYROXINE SODIUM\LIOTHYRONINE SODIUM [Concomitant]
     Active Substance: LEVOTHYROXINE SODIUM\LIOTHYRONINE SODIUM
     Indication: Product used for unknown indication
     Dosage: 74 MILLIGRAM, ONCE A DAY (74 MG, 1X/DAY)
     Route: 065

REACTIONS (6)
  - Toxicity to various agents [Not Recovered/Not Resolved]
  - Interstitial lung disease [Recovered/Resolved]
  - Respiratory failure [Recovered/Resolved]
  - Oedema peripheral [Recovered/Resolved]
  - Bronchitis [Recovered/Resolved]
  - Adverse drug reaction [Recovered/Resolved]

NARRATIVE: CASE EVENT DATE: 20190301
